FAERS Safety Report 10616412 (Version 1)
Quarter: 2014Q4

REPORT INFORMATION
  Report Type: Spontaneous
  Country: US (occurrence: None)
  Receive Date: 20141125
  Receipt Date: 20141125
  Transmission Date: 20150529
  Serious: Yes (Life-Threatening, Hospitalization)
  Sender: FDA-Public Use
  Company Number: None

PATIENT
  Sex: Female
  Weight: 99.79 kg

DRUGS (1)
  1. POLY-IRON 150 MG POLYSACCRIDE IRON CONTRACT PHARMACAL CORPORATION [Suspect]
     Active Substance: DIETARY SUPPLEMENT
     Indication: ANAEMIA
     Dosage: 150  3X/DAY BY MOUTH
     Route: 048
     Dates: start: 20120712, end: 20140409

REACTIONS (16)
  - Melaena [None]
  - Hypoaesthesia [None]
  - Vomiting [None]
  - Disorientation [None]
  - Skin disorder [None]
  - Faeces discoloured [None]
  - Photosensitivity reaction [None]
  - Haematemesis [None]
  - Urticaria [None]
  - Hypersomnia [None]
  - Skin wound [None]
  - Movement disorder [None]
  - Alopecia [None]
  - Parosmia [None]
  - Dyspnoea [None]
  - Haemoglobin decreased [None]

NARRATIVE: CASE EVENT DATE: 20140409
